FAERS Safety Report 8257215-4 (Version None)
Quarter: 2012Q2

REPORT INFORMATION
  Report Type: 
  Country: None (occurrence: None)
  Receive Date: 20120403
  Receipt Date: 20120320
  Transmission Date: 20120825
  Serious: Yes (Hospitalization, Other)
  Sender: FDA-Public Use
  Company Number: US-BRISTOL-MYERS SQUIBB COMPANY-16227761

PATIENT
  Age: 65 Year
  Sex: Male
  Weight: 113 kg

DRUGS (9)
  1. ALLOPURINOL [Concomitant]
  2. FENTANYL [Concomitant]
  3. FUROSEMIDE [Concomitant]
  4. NOVOLOG [Concomitant]
  5. CETUXIMAB [Suspect]
     Indication: NON-SMALL CELL LUNG CANCER
     Dosage: INTER ON 19OCT10 RESTAT ON 26OCT10 WITH 1682MG INTER ON02NOV10
     Route: 042
     Dates: start: 20100928
  6. CARBOPLATIN [Suspect]
     Indication: NON-SMALL CELL LUNG CANCER
     Dosage: INTER ON 26OCT19OCT10 26OCT10-UNK,1462MG
     Route: 042
     Dates: start: 20100928
  7. GLYBURIDE [Concomitant]
  8. MEDROL [Concomitant]
     Dates: start: 20101014
  9. PACLITAXEL [Suspect]
     Indication: NON-SMALL CELL LUNG CANCER
     Dosage: INTER ON 19OCT10 26OCT10-UNK,900MG
     Route: 042
     Dates: start: 20100928

REACTIONS (19)
  - HYPOKALAEMIA [None]
  - HYPONATRAEMIA [None]
  - NEUTROPENIA [None]
  - HYPERGLYCAEMIA [None]
  - HAEMOGLOBIN DECREASED [None]
  - PNEUMONITIS [None]
  - NEUTROPHIL COUNT DECREASED [None]
  - DIARRHOEA [None]
  - URINE OUTPUT DECREASED [None]
  - BLOOD PRESSURE DIASTOLIC DECREASED [None]
  - PYREXIA [None]
  - DEHYDRATION [None]
  - PLATELET COUNT DECREASED [None]
  - BLOOD CREATININE INCREASED [None]
  - NAUSEA [None]
  - VOMITING [None]
  - GOUT [None]
  - WHITE BLOOD CELL COUNT DECREASED [None]
  - BLOOD MAGNESIUM DECREASED [None]
